FAERS Safety Report 7713512-X (Version None)
Quarter: 2011Q3

REPORT INFORMATION
  Report Type: 
  Country: None (occurrence: None)
  Receive Date: 20110826
  Receipt Date: 20110823
  Transmission Date: 20111222
  Serious: Yes (Hospitalization)
  Sender: FDA-Public Use
  Company Number: US-GILEAD-2011-0042934

PATIENT
  Sex: Female

DRUGS (3)
  1. TYVASO [Concomitant]
  2. LETAIRIS [Suspect]
     Indication: PULMONARY HYPERTENSION
     Route: 048
     Dates: start: 20110124
  3. LETAIRIS [Suspect]
     Indication: LUNG DISORDER

REACTIONS (1)
  - TRANSPLANT EVALUATION [None]
